FAERS Safety Report 21670535 (Version 1)
Quarter: 2022Q4

REPORT INFORMATION
  Report Type: Report from Study
  Country: US (occurrence: US)
  Receive Date: 20221201
  Receipt Date: 20221201
  Transmission Date: 20230113
  Serious: Yes (Other)
  Sender: FDA-Public Use
  Company Number: US-ABBVIE-4163003

PATIENT
  Age: 43 Year
  Sex: Female

DRUGS (4)
  1. HUMIRA [Suspect]
     Active Substance: ADALIMUMAB
     Indication: Psoriatic arthropathy
     Dosage: STRENGTH 40 MG
     Route: 058
  2. MODERNA COVID-19 VACCINE [Suspect]
     Active Substance: ELASOMERAN
     Indication: COVID-19 immunisation
     Dosage: ONE IN ONCE, FIRST AND LAST  ADMIN DATE: 01 JAN 2021
     Route: 030
  3. MODERNA COVID-19 VACCINE [Suspect]
     Active Substance: ELASOMERAN
     Indication: COVID-19 immunisation
     Dosage: ONE IN ONCE, FIRST AND LAST  ADMIN DATE: 01 FEB 2021
     Route: 030
  4. JANSSEN COVID-19 VACCINE [Concomitant]
     Active Substance: AD26.COV2.S
     Indication: COVID-19 immunisation
     Dosage: ONE IN ONCE, BOOSTER DOSE
     Route: 030
     Dates: start: 20220101, end: 20220101

REACTIONS (5)
  - Anaphylactic reaction [Unknown]
  - Psoriatic arthropathy [Recovering/Resolving]
  - Vaccination site joint erythema [Unknown]
  - Vaccination site pain [Unknown]
  - Vaccination site swelling [Unknown]

NARRATIVE: CASE EVENT DATE: 20210101
